FAERS Safety Report 26107177 (Version 1)
Quarter: 2025Q4

REPORT INFORMATION
  Report Type: Spontaneous
  Country: EU (occurrence: EU)
  Receive Date: 20251201
  Receipt Date: 20251201
  Transmission Date: 20260117
  Serious: Yes (Hospitalization, Other)
  Sender: BRISTOL-MYERS SQUIBB COMPANY
  Company Number: EU-BRISTOL-MYERS SQUIBB COMPANY-2025-160789

PATIENT
  Age: 3 Year
  Sex: Female
  Weight: 21.3 kg

DRUGS (2)
  1. REPOTRECTINIB [Suspect]
     Active Substance: REPOTRECTINIB
     Indication: Congenital fibrosarcoma
     Dosage: 32 MG/ML, 2.4 ML X2/DAY
     Route: 048
     Dates: start: 20230823, end: 20240402
  2. REPOTRECTINIB [Suspect]
     Active Substance: REPOTRECTINIB
     Route: 048
     Dates: start: 20240421, end: 20240430

REACTIONS (16)
  - Hypertension [Recovered/Resolved]
  - Vomiting [Unknown]
  - Abdominal pain [Unknown]
  - Somnolence [Unknown]
  - Central hypothyroidism [Unknown]
  - Hypertensive encephalopathy [Recovering/Resolving]
  - Tricuspid valve incompetence [Unknown]
  - Cerebral microhaemorrhage [Unknown]
  - Encephalitis [Unknown]
  - Roseolovirus test positive [Unknown]
  - Rubivirus test positive [Unknown]
  - Morbillivirus test positive [Unknown]
  - Rubulavirus test positive [Unknown]
  - Mycoplasma test positive [Unknown]
  - Hyperadrenocorticism [Unknown]
  - Off label use [Unknown]

NARRATIVE: CASE EVENT DATE: 20240206
